FAERS Safety Report 8871039 (Version 1)
Quarter: 2012Q4

REPORT INFORMATION
  Report Type: 
  Country: US (occurrence: US)
  Receive Date: 20121026
  Receipt Date: 20121026
  Transmission Date: 20130627
  Serious: No
  Sender: FDA-Public Use
  Company Number: US-AMGEN-USASP2012046513

PATIENT
  Age: 71 Year
  Sex: Female
  Weight: 73 kg

DRUGS (6)
  1. ENBREL [Suspect]
     Indication: PRODUCT USED FOR UNKNOWN INDICATION
     Dosage: 50 mg, qwk
     Route: 058
  2. COREG [Concomitant]
     Dosage: 12.5 mg, UNK
  3. AMARYL [Concomitant]
     Dosage: 1 mg, UNK
  4. LIPITOR [Concomitant]
     Dosage: 10 mg, UNK
  5. ENALAPRIL [Concomitant]
     Dosage: 20 mg, UNK
  6. JINTELI [Concomitant]
     Dosage: 1mg-5mcg, UNK

REACTIONS (1)
  - Localised infection [Unknown]
